FAERS Safety Report 4711111-5 (Version None)
Quarter: 2005Q3

REPORT INFORMATION
  Report Type: 
  Country: None (occurrence: None)
  Receive Date: 20050707
  Receipt Date: 20050627
  Transmission Date: 20060218
  Serious: Yes (Death, Other)
  Sender: FDA-Public Use
  Company Number: URSO 2005-015

PATIENT
  Age: 62 Year
  Sex: Female

DRUGS (8)
  1. URSODIOL [Suspect]
     Indication: BILIARY CIRRHOSIS PRIMARY
     Dosage: 300 MG PO
     Route: 048
     Dates: start: 20011204, end: 20030315
  2. THIATON (TIQUIZIUM BROMIDE) [Concomitant]
  3. OMEPRAZOLE [Concomitant]
  4. RIZE (CLOTIAZEPAM) [Concomitant]
  5. BUSCOPAN (SCOPOLAMINE BUTYLBROMIDE) [Concomitant]
  6. NAUZELIN (DOMPERIDONE) [Concomitant]
  7. PAXIL (PAROXETINE HYDROCHLORIDE HYDRATE) [Concomitant]
  8. COLIOPAN (BUTROPIUM BROMIDE) [Concomitant]

REACTIONS (5)
  - BLOOD UREA INCREASED [None]
  - CARDIAC FAILURE ACUTE [None]
  - DEHYDRATION [None]
  - DIARRHOEA [None]
  - SUDDEN DEATH [None]
